FAERS Safety Report 24262226 (Version 1)
Quarter: 2024Q3

REPORT INFORMATION
  Report Type: Spontaneous
  Country: JP (occurrence: JP)
  Receive Date: 20240829
  Receipt Date: 20240829
  Transmission Date: 20241017
  Serious: Yes (Other)
  Sender: RANBAXY
  Company Number: JP-SUN PHARMACEUTICAL INDUSTRIES LTD-2024RR-464497

PATIENT
  Age: 86 Year
  Sex: Male

DRUGS (5)
  1. GEMCITABINE [Suspect]
     Active Substance: GEMCITABINE
     Indication: Hepatic neoplasm
     Dosage: 6 COURSES
     Route: 065
  2. CISPLATIN [Suspect]
     Active Substance: CISPLATIN
     Indication: Metastases to liver
     Dosage: 6 COURSES
     Route: 065
  3. TEGAFUR [Suspect]
     Active Substance: TEGAFUR
     Indication: Hepatic neoplasm
     Dosage: UNK
     Route: 065
  4. GIMERACIL [Suspect]
     Active Substance: GIMERACIL
     Indication: Hepatic neoplasm
     Dosage: UNK
     Route: 065
  5. OTERACIL [Suspect]
     Active Substance: OTERACIL
     Indication: Hepatic neoplasm
     Dosage: UNK
     Route: 065

REACTIONS (3)
  - Muscular weakness [Unknown]
  - Thrombophlebitis migrans [Unknown]
  - Disease progression [Unknown]
